FAERS Safety Report 5529829-3 (Version None)
Quarter: 2007Q4

REPORT INFORMATION
  Report Type: 
  Country: None (occurrence: None)
  Receive Date: 20071129
  Receipt Date: 20070716
  Transmission Date: 20080405
  Serious: No
  Sender: FDA-Public Use
  Company Number: US-ABBOTT-07P-163-0374676-00

PATIENT
  Sex: Female
  Weight: 68.1 kg

DRUGS (3)
  1. MERIDIA [Suspect]
     Indication: WEIGHT CONTROL
     Route: 048
     Dates: start: 20061101, end: 20070501
  2. MERIDIA [Suspect]
     Route: 048
     Dates: start: 20061101, end: 20070501
  3. MERIDIA [Suspect]
     Route: 048
     Dates: start: 20060901, end: 20061101

REACTIONS (4)
  - ABDOMINAL PAIN [None]
  - INFLAMMATION [None]
  - PELVIC MASS [None]
  - PELVIC PAIN [None]
